FAERS Safety Report 7959941-0 (Version None)
Quarter: 2011Q4

REPORT INFORMATION
  Report Type: 
  Country: None (occurrence: None)
  Receive Date: 20111206
  Receipt Date: 20111202
  Transmission Date: 20120403
  Serious: Yes (Life-Threatening)
  Sender: FDA-Public Use
  Company Number: DE-ASTRAZENECA-2011SE73267

PATIENT

DRUGS (2)
  1. ETHANOL [Suspect]
     Dosage: 0.12 G/L
     Route: 048
  2. QUETIAPINE [Suspect]
     Dosage: TOTAL INGESTED DOSE 12G
     Route: 048

REACTIONS (5)
  - OVERDOSE [None]
  - SUICIDE ATTEMPT [None]
  - PNEUMONIA [None]
  - SUPRAVENTRICULAR TACHYCARDIA [None]
  - CONVULSION [None]
